FAERS Safety Report 10740743 (Version 11)
Quarter: 2016Q2

REPORT INFORMATION
  Report Type: Spontaneous
  Country: JP (occurrence: JP)
  Receive Date: 20150127
  Receipt Date: 20160503
  Transmission Date: 20160815
  Serious: Yes (Life-Threatening, Hospitalization, Other)
  Sender: FDA-Public Use
  Company Number: JP-ROCHE-1526863

PATIENT
  Age: 8 Year
  Sex: Female
  Weight: 30 kg

DRUGS (18)
  1. SANDIMMUN [Suspect]
     Active Substance: CYCLOSPORINE
     Indication: JUVENILE IDIOPATHIC ARTHRITIS
     Dosage: 2015/2/1 1.7ML/HR 1.0ML/HR?2015/2/2 1.0ML/HR 1.2ML/HR?2015/2/3 1.2ML/HR 1.4ML/HR?2015/2/5 1.4ML/H
     Route: 042
     Dates: start: 20150203, end: 20150204
  2. SANDIMMUN [Suspect]
     Active Substance: CYCLOSPORINE
     Dosage: 2015/2/1 1.7ML/HR 1.0ML/HR?2015/2/2 1.0ML/HR 1.2ML/HR?2015/2/3 1.2ML/HR 1.4ML/HR?2015/2/5 1.4ML/H
     Route: 042
     Dates: start: 20150211, end: 20150213
  3. PREDONINE [Concomitant]
     Active Substance: PREDNISOLONE\PREDNISOLONE ACETATE\PREDNISOLONE SODIUM SUCCINATE
     Indication: JUVENILE IDIOPATHIC ARTHRITIS
     Route: 042
     Dates: start: 20150122, end: 20150123
  4. SANDIMMUN [Suspect]
     Active Substance: CYCLOSPORINE
     Indication: JUVENILE IDIOPATHIC ARTHRITIS
     Dosage: 2015/2/1 1.7ML/HR 1.0ML/HR?2015/2/2 1.0ML/HR 1.2ML/HR?2015/2/3 1.2ML/HR 1.4ML/HR?2015/2/5 1.4ML/H
     Route: 042
     Dates: start: 20150128, end: 20150131
  5. SANDIMMUN [Suspect]
     Active Substance: CYCLOSPORINE
     Indication: JUVENILE IDIOPATHIC ARTHRITIS
     Dosage: 2015/2/1 1.7ML/HR 1.0ML/HR?2015/2/2 1.0ML/HR 1.2ML/HR?2015/2/3 1.2ML/HR 1.4ML/HR?2015/2/5 1.4ML/H
     Route: 042
     Dates: start: 20150205, end: 20150210
  6. CARBOCISTEINE [Concomitant]
     Active Substance: CARBOCYSTEINE
     Indication: UPPER RESPIRATORY TRACT INFLAMMATION
     Route: 048
     Dates: start: 20150120, end: 20150304
  7. ALLEGRA [Concomitant]
     Active Substance: FEXOFENADINE HYDROCHLORIDE
     Indication: PRURITUS
     Route: 048
     Dates: start: 20150106, end: 20150304
  8. SANDIMMUN [Suspect]
     Active Substance: CYCLOSPORINE
     Indication: JUVENILE IDIOPATHIC ARTHRITIS
     Dosage: 2015/2/1 1.7ML/HR 1.0ML/HR?2015/2/2 1.0ML/HR 1.2ML/HR?2015/2/3 1.2ML/HR 1.4ML/HR?2015/2/5 1.4ML/H
     Route: 042
     Dates: start: 20150201, end: 20150201
  9. PREDONINE [Concomitant]
     Active Substance: PREDNISOLONE\PREDNISOLONE ACETATE\PREDNISOLONE SODIUM SUCCINATE
     Indication: JUVENILE IDIOPATHIC ARTHRITIS
     Route: 042
     Dates: start: 20150114, end: 20150121
  10. RENIVACE [Concomitant]
     Active Substance: ENALAPRIL
     Indication: HYPERTENSION
     Route: 048
     Dates: start: 20140613
  11. RENIVACE [Concomitant]
     Active Substance: ENALAPRIL
     Route: 048
  12. ACTEMRA [Suspect]
     Active Substance: TOCILIZUMAB
     Indication: JUVENILE IDIOPATHIC ARTHRITIS
     Route: 042
     Dates: start: 20140513, end: 20150123
  13. ACTEMRA [Suspect]
     Active Substance: TOCILIZUMAB
     Route: 042
     Dates: start: 20150504, end: 20150504
  14. SANDIMMUN [Suspect]
     Active Substance: CYCLOSPORINE
     Indication: JUVENILE IDIOPATHIC ARTHRITIS
     Dosage: 2015/2/1 1.7ML/HR 1.0ML/HR?2015/2/2 1.0ML/HR 1.2ML/HR?2015/2/3 1.2ML/HR 1.4ML/HR?2015/2/5 1.4ML/H
     Route: 042
     Dates: start: 20150202, end: 20150202
  15. TEPRENONE [Concomitant]
     Active Substance: TEPRENONE
     Indication: PROPHYLAXIS
     Route: 048
     Dates: start: 20140627
  16. TACROLIMUS HYDRATE [Suspect]
     Active Substance: TACROLIMUS
     Indication: JUVENILE IDIOPATHIC ARTHRITIS
     Route: 065
     Dates: start: 20150211, end: 20150213
  17. AMLODIPINE [Concomitant]
     Active Substance: AMLODIPINE BESYLATE
     Indication: HYPERTENSION
     Route: 048
     Dates: start: 20150201
  18. XYZAL [Concomitant]
     Active Substance: LEVOCETIRIZINE DIHYDROCHLORIDE
     Indication: PRURITUS
     Route: 048
     Dates: start: 20150125, end: 20150304

REACTIONS (12)
  - Thrombocytopenia [Not Recovered/Not Resolved]
  - Posterior reversible encephalopathy syndrome [Recovered/Resolved]
  - Agranulocytosis [Unknown]
  - Epilepsy [Unknown]
  - Upper respiratory tract inflammation [Unknown]
  - Histiocytosis haematophagic [Recovering/Resolving]
  - Pneumocystis jirovecii pneumonia [Recovering/Resolving]
  - Cell marker increased [Unknown]
  - Rheumatoid arthritis [Unknown]
  - Posterior reversible encephalopathy syndrome [Recovered/Resolved]
  - Histiocytosis haematophagic [Recovered/Resolved]
  - Seizure [Unknown]

NARRATIVE: CASE EVENT DATE: 20150111
